FAERS Safety Report 4957478-4 (Version None)
Quarter: 2006Q1

REPORT INFORMATION
  Report Type: 
  Country: None (occurrence: None)
  Receive Date: 20060330
  Receipt Date: 20060327
  Transmission Date: 20060701
  Serious: Yes (Life-Threatening)
  Sender: FDA-Public Use
  Company Number: JP-BOEHRINGER INGELHEIM PHARMACEUTICALS, INC.-2006-BP-03451NB

PATIENT
  Sex: Male
  Weight: 70 kg

DRUGS (7)
  1. MICARDIS [Suspect]
     Indication: ESSENTIAL HYPERTENSION
     Route: 048
     Dates: start: 20040720, end: 20041222
  2. BUFFERIN [Concomitant]
     Route: 048
     Dates: start: 20000119
  3. HALCION [Concomitant]
     Route: 048
     Dates: start: 20000119
  4. ISOSORBIDE MONONITRATE [Concomitant]
     Route: 048
     Dates: start: 20000119
  5. CINALONG [Concomitant]
     Route: 048
     Dates: start: 20000119
  6. DETANTOL R [Concomitant]
     Route: 048
     Dates: start: 20000119
  7. PANALDINE [Concomitant]
     Route: 048
     Dates: start: 20000119

REACTIONS (1)
  - EOSINOPHILIC PNEUMONIA [None]
